FAERS Safety Report 23685789 (Version 1)
Quarter: 2024Q1

REPORT INFORMATION
  Report Type: Spontaneous
  Country: US (occurrence: US)
  Receive Date: 20240329
  Receipt Date: 20240329
  Transmission Date: 20240410
  Serious: No
  Sender: FDA-Public Use
  Company Number: US-AMGEN-USASP2024058635

PATIENT
  Age: 93 Year
  Sex: Female

DRUGS (5)
  1. REPATHA [Suspect]
     Active Substance: EVOLOCUMAB
     Indication: Cardiovascular disorder
     Dosage: 140 MILLIGRAM, Q2WK
     Route: 058
     Dates: end: 202402
  2. PLAVIX [Concomitant]
     Active Substance: CLOPIDOGREL BISULFATE
     Dosage: UNK
  3. NIFEDIPINE [Concomitant]
     Active Substance: NIFEDIPINE
     Dosage: UNK
  4. BISOPROLOL FUMARATE\HYDROCHLOROTHIAZIDE [Concomitant]
     Active Substance: BISOPROLOL FUMARATE\HYDROCHLOROTHIAZIDE
     Dosage: UNK
  5. PAROXETINE [Concomitant]
     Active Substance: PAROXETINE
     Dosage: UNK

REACTIONS (8)
  - Skin discolouration [Recovering/Resolving]
  - Lung disorder [Unknown]
  - Dysphonia [Unknown]
  - Skin disorder [Recovering/Resolving]
  - Pruritus [Recovering/Resolving]
  - Palmar erythema [Unknown]
  - Oropharyngeal pain [Unknown]
  - Erythema [Unknown]

NARRATIVE: CASE EVENT DATE: 20240201
